FAERS Safety Report 21581927 (Version 1)
Quarter: 2022Q4

REPORT INFORMATION
  Report Type: Spontaneous
  Country: US (occurrence: None)
  Receive Date: 20221108
  Receipt Date: 20221108
  Transmission Date: 20230113
  Serious: No
  Sender: FDA-Public Use
  Company Number: None

PATIENT

DRUGS (5)
  1. PYRIDOXINE [Suspect]
     Active Substance: PYRIDOXINE
     Route: 048
  2. RIBOFLAVIN [Suspect]
     Active Substance: RIBOFLAVIN
  3. VITAMIN B1 [Suspect]
     Active Substance: THIAMINE HYDROCHLORIDE
     Route: 048
  4. VITAMIN B12 [Suspect]
     Active Substance: CYANOCOBALAMIN
     Route: 048
  5. VITAMIN B12 [Suspect]
     Active Substance: CYANOCOBALAMIN

REACTIONS (3)
  - Product dispensing error [None]
  - Product barcode issue [None]
  - Product name confusion [None]
